FAERS Safety Report 6236590-6 (Version None)
Quarter: 2009Q2

REPORT INFORMATION
  Report Type: 
  Country: None (occurrence: None)
  Receive Date: 20090619
  Receipt Date: 20090611
  Transmission Date: 20091009
  Serious: Yes (Hospitalization)
  Sender: FDA-Public Use
  Company Number: CN-JNJFOC-20090606175

PATIENT
  Age: 42 Year
  Sex: Female

DRUGS (5)
  1. LEVOFLOXACIN [Suspect]
     Indication: DRUG USE FOR UNKNOWN INDICATION
     Dosage: 0.2 % LEVOFLOXACIN AND SODIUM CHLORIDE 200 ML
     Route: 041
  2. CEFTRIAXONE SODIUM [Concomitant]
     Route: 041
  3. DEXAMETHASONE SODIUM PHOSPHATE [Concomitant]
     Route: 041
  4. AMINOPHYLLINE [Concomitant]
     Route: 041
  5. ISOTONIC SODIUM CHLORIDE [Concomitant]
     Route: 041

REACTIONS (10)
  - ASTHENIA [None]
  - CYANOSIS [None]
  - DEPENDENCE [None]
  - DYSPNOEA [None]
  - MUSCLE RIGIDITY [None]
  - MUSCLE SPASMS [None]
  - NAUSEA [None]
  - RESPIRATORY RATE INCREASED [None]
  - UNEVALUABLE EVENT [None]
  - VOMITING [None]
